FAERS Safety Report 25963942 (Version 1)
Quarter: 2025Q4

REPORT INFORMATION
  Report Type: Spontaneous
  Country: US (occurrence: None)
  Receive Date: 20251027
  Receipt Date: 20251027
  Transmission Date: 20260117
  Serious: Yes (Other)
  Sender: FDA-CTU
  Company Number: None

PATIENT
  Sex: Female

DRUGS (5)
  1. ENBREL [Suspect]
     Active Substance: ETANERCEPT
     Indication: Psoriatic arthropathy
     Dosage: FREQUENCY : WEEKLY;?
     Dates: start: 20220111
  2. ENBREL [Concomitant]
     Active Substance: ETANERCEPT
  3. METFORMIN TAB 500MG ER [Concomitant]
  4. NORTRIPTYLIN CAP 25MG [Concomitant]
  5. OMEPRAZOLE TAB 20MG [Concomitant]

REACTIONS (1)
  - Cholecystectomy [None]
